FAERS Safety Report 8857919 (Version 1)
Quarter: 2012Q4

REPORT INFORMATION
  Report Type: 
  Country: US (occurrence: US)
  Receive Date: 20121024
  Receipt Date: 20121024
  Transmission Date: 20130627
  Serious: Yes (Other)
  Sender: FDA-Public Use
  Company Number: US-AMGEN-USASP2012003557

PATIENT
  Sex: Male
  Weight: 126.53 kg

DRUGS (9)
  1. ENBREL [Suspect]
     Indication: PRODUCT USED FOR UNKNOWN INDICATION
     Dosage: 50 mg, qwk
     Route: 058
  2. LASIX                              /00032601/ [Concomitant]
     Dosage: 20 mg, UNK
  3. GLIMEPIRIDE [Concomitant]
     Dosage: 1 mg, UNK
  4. METFORMIN [Concomitant]
     Dosage: 1000 mg, UNK
  5. PANTOPRAZOLE [Concomitant]
     Dosage: 20 mg, UNK
  6. TYLENOL ARTHRITIS [Concomitant]
     Dosage: 650 mg, UNK
  7. TRAMADOL HCL [Concomitant]
     Dosage: 50 mg, UNK
  8. BYETTA [Concomitant]
     Dosage: 10 mug, UNK
  9. IRON W/VITAMIN C [Concomitant]

REACTIONS (2)
  - Staphylococcal infection [Unknown]
  - Injection site bruising [Unknown]
